FAERS Safety Report 8222110-3 (Version None)
Quarter: 2012Q1

REPORT INFORMATION
  Report Type: 
  Country: None (occurrence: None)
  Receive Date: 20120316
  Receipt Date: 20120307
  Transmission Date: 20120608
  Serious: Yes (Hospitalization)
  Sender: FDA-Public Use
  Company Number: 2011SP041935

PATIENT
  Sex: Male

DRUGS (3)
  1. MIRTAZAPINE [Suspect]
     Indication: PRODUCT USED FOR UNKNOWN INDICATION
     Dosage: 45 MG
     Dates: start: 20100901
  2. ALVERINE CITRATE [Concomitant]
  3. TRAMADOL HCL [Concomitant]

REACTIONS (11)
  - MYALGIA [None]
  - FACIAL BONES FRACTURE [None]
  - CHROMATURIA [None]
  - ABNORMAL DREAMS [None]
  - SYNCOPE [None]
  - BACK PAIN [None]
  - NAUSEA [None]
  - LOSS OF CONSCIOUSNESS [None]
  - VOMITING [None]
  - CONVULSION [None]
  - DIARRHOEA [None]
